FAERS Safety Report 10922272 (Version 1)
Quarter: 2015Q1

REPORT INFORMATION
  Report Type: Spontaneous
  Country: US (occurrence: US)
  Receive Date: 20150317
  Receipt Date: 20150317
  Transmission Date: 20150721
  Serious: No
  Sender: FDA-Public Use
  Company Number: US-BAUSCH-SYM-2014-23910

PATIENT
  Age: 59 Year
  Sex: Female
  Weight: 47.67 kg

DRUGS (5)
  1. TASMAR [Suspect]
     Active Substance: TOLCAPONE
     Route: 048
  2. SINEMET CR [Concomitant]
     Active Substance: CARBIDOPA\LEVODOPA
     Indication: PRODUCT USED FOR UNKNOWN INDICATION
  3. TASMAR [Suspect]
     Active Substance: TOLCAPONE
     Indication: PARKINSON^S DISEASE
     Route: 048
  4. PRAMIPEXOLE [Concomitant]
     Active Substance: PRAMIPEXOLE
     Indication: PRODUCT USED FOR UNKNOWN INDICATION
  5. LEVODOPA/CARBIDOPA [Concomitant]
     Indication: PRODUCT USED FOR UNKNOWN INDICATION

REACTIONS (2)
  - Psychomotor hyperactivity [Recovering/Resolving]
  - Movement disorder [Recovering/Resolving]
